FAERS Safety Report 25787668 (Version 1)
Quarter: 2025Q3

REPORT INFORMATION
  Report Type: Spontaneous
  Country: US (occurrence: None)
  Receive Date: 20250910
  Receipt Date: 20250910
  Transmission Date: 20251021
  Serious: Yes (Hospitalization)
  Sender: FDA-CTU
  Company Number: None

PATIENT
  Age: 65 Year
  Sex: Female

DRUGS (14)
  1. NUCALA [Suspect]
     Active Substance: MEPOLIZUMAB
     Indication: Chronic obstructive pulmonary disease
     Dosage: FREQUENCY : MONTHLY;?
     Dates: start: 20250828
  2. DUPIXENT [Suspect]
     Active Substance: DUPILUMAB
  3. ALBUTEROL HFA INH [Concomitant]
  4. COMBIVENT RESPIMAT ORAL [Concomitant]
  5. ASPIRIN 81MG EC LOW DOSE [Concomitant]
  6. LOSARTAN POTASSIUM [Concomitant]
     Active Substance: LOSARTAN POTASSIUM
  7. ALDACTONE 25MG TABLETS [Concomitant]
  8. ALLOPURINOL 100MG TABLETS [Concomitant]
  9. BUMETANIDE 2MG TABLETS [Concomitant]
  10. BUSPIRONE 15MG TABLETS [Concomitant]
  11. K-TAB 10MEQ CR TABLETS [Concomitant]
  12. METOLAZONE 5MG TABLETS [Concomitant]
  13. METOPROLOL SUCCINATE [Concomitant]
     Active Substance: METOPROLOL SUCCINATE
  14. ROSUVASTATIN [Concomitant]
     Active Substance: ROSUVASTATIN

REACTIONS (2)
  - Injection site pain [None]
  - Hypersensitivity [None]

NARRATIVE: CASE EVENT DATE: 20250828
